FAERS Safety Report 15583118 (Version 1)
Quarter: 2018Q4

REPORT INFORMATION
  Report Type: Spontaneous
  Country: US (occurrence: US)
  Receive Date: 20181103
  Receipt Date: 20181103
  Transmission Date: 20190205
  Serious: No
  Sender: FDA-Public Use
  Company Number: US-TEVA-2018-US-969604

PATIENT
  Sex: Female

DRUGS (1)
  1. COPAXONE [Suspect]
     Active Substance: GLATIRAMER ACETATE

REACTIONS (6)
  - Adverse reaction [Unknown]
  - Injection site erythema [Unknown]
  - Injection site reaction [Unknown]
  - Fear of injection [Unknown]
  - Injection site pain [Unknown]
  - Injection site warmth [Unknown]
